FAERS Safety Report 11745481 (Version 2)
Quarter: 2015Q4

REPORT INFORMATION
  Report Type: Spontaneous
  Country: IT (occurrence: IT)
  Receive Date: 20151117
  Receipt Date: 20151201
  Transmission Date: 20160304
  Serious: Yes (Other)
  Sender: FDA-Public Use
  Company Number: IT-AUROBINDO-AUR-APL-2015-10095

PATIENT
  Age: 57 Year
  Sex: Male

DRUGS (3)
  1. SIRIO [Concomitant]
     Active Substance: CARBIDOPA\MELEVODOPA
     Indication: PARKINSON^S DISEASE
     Dosage: 500 MG
     Route: 048
  2. OLANZAPINA AUROBINDO 10MG TABLETS [Suspect]
     Active Substance: OLANZAPINE
     Indication: HALLUCINATION
     Dosage: 10 MG DAILY
     Route: 048
     Dates: start: 20150501, end: 20151002
  3. SIRIO [Concomitant]
     Active Substance: CARBIDOPA\MELEVODOPA
     Dosage: 500 MG
     Route: 048

REACTIONS (3)
  - Bradykinesia [Recovering/Resolving]
  - Parkinsonism [Recovering/Resolving]
  - Muscle rigidity [Recovering/Resolving]

NARRATIVE: CASE EVENT DATE: 20151002
